FAERS Safety Report 4774811-7 (Version None)
Quarter: 2005Q3

REPORT INFORMATION
  Report Type: 
  Country: None (occurrence: None)
  Receive Date: 20050919
  Receipt Date: 20050907
  Transmission Date: 20060218
  Serious: Yes (Other)
  Sender: FDA-Public Use
  Company Number: 2005124813

PATIENT
  Age: 6 Year
  Sex: Male
  Weight: 17.6903 kg

DRUGS (1)
  1. BENADRYL [Suspect]
     Indication: URTICARIA
     Dosage: 1.5-2 TEASPOONS EVERY FOUR HOURS, ORAL
     Route: 048
     Dates: start: 20050901

REACTIONS (3)
  - CONDITION AGGRAVATED [None]
  - SOMNOLENCE [None]
  - URTICARIA [None]
